FAERS Safety Report 8450244-7 (Version None)
Quarter: 2012Q2

REPORT INFORMATION
  Report Type: 
  Country: None (occurrence: None)
  Receive Date: 20120620
  Receipt Date: 20120615
  Transmission Date: 20120825
  Serious: Yes (Hospitalization)
  Sender: FDA-Public Use
  Company Number: IR-ABBOTT-12P-080-0946772-00

PATIENT
  Age: 28 Year
  Sex: Male

DRUGS (2)
  1. THIORIDAZINE HCL [Suspect]
     Indication: PSYCHOTIC DISORDER
     Route: 065
  2. VALPROIC ACID [Suspect]
     Indication: PSYCHOTIC DISORDER
     Route: 065

REACTIONS (9)
  - TACHYCARDIA [None]
  - CATATONIA [None]
  - NEUROLEPTIC MALIGNANT SYNDROME [None]
  - HYPERTHERMIA [None]
  - DEPRESSED LEVEL OF CONSCIOUSNESS [None]
  - HYPERHIDROSIS [None]
  - COGNITIVE DISORDER [None]
  - MUSCLE RIGIDITY [None]
  - BLOOD CREATINE PHOSPHOKINASE INCREASED [None]
